FAERS Safety Report 10866947 (Version 3)
Quarter: 2015Q4

REPORT INFORMATION
  Report Type: Other
  Country: GR (occurrence: GR)
  Receive Date: 20150225
  Receipt Date: 20151126
  Transmission Date: 20160304
  Serious: Yes (Death, Hospitalization)
  Sender: FDA-Public Use
  Company Number: GR-ACTELION-A-CH2015-113354

PATIENT
  Age: 71 Year
  Sex: Male

DRUGS (4)
  1. NORVASC [Concomitant]
     Active Substance: AMLODIPINE BESYLATE
     Dosage: 5 MG, OD
  2. ATACAND [Concomitant]
     Active Substance: CANDESARTAN CILEXETIL
     Indication: HYPERTENSION
     Dosage: 16 MG, OD
  3. TENORMIN [Concomitant]
     Active Substance: ATENOLOL
     Indication: HYPERTENSION
     Dosage: 25 MG, OD
  4. ZAVESCA [Suspect]
     Active Substance: MIGLUSTAT
     Indication: GAUCHER^S DISEASE TYPE I
     Dosage: UNK
     Route: 048
     Dates: start: 20040325, end: 200506

REACTIONS (8)
  - Blood bilirubin increased [Fatal]
  - Tremor [Recovering/Resolving]
  - Platelet count decreased [Unknown]
  - Jaundice [Fatal]
  - Hepatosplenomegaly [Fatal]
  - Pancreatic carcinoma [Fatal]
  - Hepatic failure [Fatal]
  - Biliary dilatation [Fatal]

NARRATIVE: CASE EVENT DATE: 20041220
